FAERS Safety Report 6260908-1 (Version None)
Quarter: 2009Q3

REPORT INFORMATION
  Report Type: 
  Country: None (occurrence: None)
  Receive Date: 20090709
  Receipt Date: 20080215
  Transmission Date: 20100115
  Serious: Yes (Hospitalization, Other)
  Sender: FDA-Public Use
  Company Number: US-ASTRAZENECA-2007UW27384

PATIENT
  Age: 41 Year
  Sex: Female
  Weight: 99.8 kg

DRUGS (51)
  1. SEROQUEL [Suspect]
     Indication: BIPOLAR DISORDER
     Dosage: 50 MG-300 MG DAILY
     Route: 048
     Dates: start: 19991118
  2. SEROQUEL [Suspect]
     Indication: INSOMNIA
     Dosage: 50 MG-300 MG DAILY
     Route: 048
     Dates: start: 19991118
  3. SEROQUEL [Suspect]
     Dosage: 25MG, 60MG, 100MG, 200MG
     Route: 048
     Dates: start: 20000201, end: 20070801
  4. SEROQUEL [Suspect]
     Dosage: 25MG, 60MG, 100MG, 200MG
     Route: 048
     Dates: start: 20000201, end: 20070801
  5. ZYPREXA [Concomitant]
     Dates: start: 20010101
  6. ZYPREXA [Concomitant]
     Route: 048
     Dates: start: 19980830
  7. PROZAC [Concomitant]
     Dates: start: 20010101
  8. PROZAC [Concomitant]
     Dates: start: 20010101
  9. PROZAC [Concomitant]
     Dosage: 10 MG-60 MG DAILY
     Route: 048
     Dates: start: 19980830
  10. TRAZODONE HCL [Concomitant]
     Dates: start: 19970101
  11. TRAZODONE HCL [Concomitant]
     Route: 048
     Dates: start: 20051118
  12. EFFEXOR [Concomitant]
     Indication: ANXIETY
     Dates: start: 20010101
  13. EFFEXOR [Concomitant]
     Indication: DEPRESSION
     Dates: start: 20010101
  14. EFFEXOR [Concomitant]
     Indication: IMPULSE-CONTROL DISORDER
     Dates: start: 20010101
  15. EFFEXOR [Concomitant]
     Dosage: 37.5 MG-150 MG DAILY
     Route: 048
     Dates: start: 19980830
  16. EFFEXOR [Concomitant]
     Dosage: 37.5 MG-150 MG DAILY
     Route: 048
     Dates: start: 19980830
  17. EFFEXOR [Concomitant]
     Dosage: 37.5 MG-150 MG DAILY
     Route: 048
     Dates: start: 19980830
  18. ABILIFY [Concomitant]
     Dates: start: 20030101
  19. ABILIFY [Concomitant]
     Dates: start: 20030911
  20. GEODON [Concomitant]
     Dates: start: 20010101
  21. GEODON [Concomitant]
     Dates: start: 20010101
  22. GEODON [Concomitant]
     Dosage: STRENGTH-20 MG-40 MG
     Route: 048
     Dates: start: 20030303
  23. GEODON [Concomitant]
     Dates: start: 20070920
  24. RISPERDAL [Concomitant]
     Dates: start: 20020101
  25. DEPAKOTE [Concomitant]
     Indication: MOOD SWINGS
     Dates: start: 19970101
  26. DEPAKOTE [Concomitant]
     Dosage: STRENGTH-250 MG-500 MG DOSE-500 MG AT NIGHT
     Route: 048
     Dates: start: 20010906
  27. PAXIL [Concomitant]
     Dates: start: 19970101
  28. WELLBUTRIN SR [Concomitant]
     Dates: start: 20010101
  29. LEXAPRO [Concomitant]
     Dates: start: 20030101
  30. RANITIDINE [Concomitant]
     Route: 048
     Dates: start: 20030911
  31. LAMICTAL [Concomitant]
     Dosage: 12.5 MG-1000 MG DAILY
     Route: 048
     Dates: start: 20030911
  32. ASACOL [Concomitant]
     Route: 048
     Dates: start: 20040223
  33. ACTOS [Concomitant]
     Dates: start: 20030506
  34. LYRICA [Concomitant]
     Route: 048
     Dates: start: 20071017
  35. DILANTIN [Concomitant]
     Indication: CONVULSION
     Route: 048
     Dates: start: 20051003
  36. PHENERGAN [Concomitant]
     Dates: start: 20030506
  37. REQUIP [Concomitant]
     Route: 048
     Dates: start: 20080205
  38. SYNTHROID [Concomitant]
     Indication: HYPERTHYROIDISM
     Dates: start: 19980830
  39. AVANDIA [Concomitant]
     Route: 048
     Dates: start: 20040224
  40. LEVAQUIN [Concomitant]
     Dates: start: 20030708
  41. DOXEPIN HCL [Concomitant]
     Indication: INSOMNIA
     Route: 048
     Dates: start: 20020218
  42. REMERON [Concomitant]
     Route: 048
     Dates: start: 19990920
  43. PREMARIN [Concomitant]
     Route: 048
     Dates: start: 20030303
  44. ALPRAZOLAM [Concomitant]
     Route: 048
     Dates: start: 20030227
  45. METOCLOPRAMIDE [Concomitant]
     Dates: start: 20030225
  46. PROTONIX [Concomitant]
     Route: 048
     Dates: start: 20050223
  47. TEMAZEPAM [Concomitant]
     Route: 048
     Dates: start: 20050222
  48. CLONAZEPAM [Concomitant]
     Route: 048
     Dates: start: 20050824
  49. NOVOLIN R [Concomitant]
     Dates: start: 20050223
  50. AMBIEN [Concomitant]
     Route: 048
     Dates: start: 20050930
  51. PRILOSEC [Concomitant]
     Route: 048
     Dates: start: 20051001

REACTIONS (6)
  - CARDIOVASCULAR DISORDER [None]
  - CONVULSION [None]
  - DIABETES MELLITUS [None]
  - HYPOGLYCAEMIA [None]
  - OBESITY [None]
  - TYPE 2 DIABETES MELLITUS [None]
